FAERS Safety Report 18668865 (Version 1)
Quarter: 2020Q4

REPORT INFORMATION
  Report Type: Spontaneous
  Country: IR (occurrence: IR)
  Receive Date: 20201228
  Receipt Date: 20201228
  Transmission Date: 20210114
  Serious: Yes (Death, Hospitalization, Other)
  Sender: FDA-Public Use
  Company Number: IR-LUPIN PHARMACEUTICALS INC.-2020-10895

PATIENT
  Age: 53 Year
  Sex: Male

DRUGS (7)
  1. KALETRA [Suspect]
     Active Substance: LOPINAVIR\RITONAVIR
     Indication: COVID-19
     Dosage: 1 DOSAGE FORM, BID
     Route: 048
     Dates: start: 202003
  2. AZITHROMYCIN ANHYDROUS. [Suspect]
     Active Substance: AZITHROMYCIN ANHYDROUS
     Indication: COVID-19
     Dosage: 500 MILLIGRAM
     Route: 048
     Dates: start: 202003
  3. AZITHROMYCIN ANHYDROUS. [Suspect]
     Active Substance: AZITHROMYCIN ANHYDROUS
     Dosage: 250 MILLIGRAM,ON DAYS 2-5
     Route: 048
     Dates: start: 202003
  4. MEROPENEM. [Suspect]
     Active Substance: MEROPENEM
     Indication: COVID-19
     Dosage: 2 GRAM, BID
     Route: 042
     Dates: start: 202003
  5. VANCOMYCIN HYDROCHLORIDE. [Suspect]
     Active Substance: VANCOMYCIN HYDROCHLORIDE
     Indication: COVID-19
     Dosage: 1 GRAM, QD
     Route: 042
     Dates: start: 202003
  6. IMMUNOGLOBULINS NOS [Suspect]
     Active Substance: IMMUNE GLOBULIN NOS
     Indication: COVID-19
     Dosage: 20 GRAM, QD
     Route: 042
     Dates: start: 202003
  7. HYDROXYCHLOROQUINE [Suspect]
     Active Substance: HYDROXYCHLOROQUINE
     Indication: COVID-19
     Dosage: 200 MILLIGRAM, BID
     Route: 048
     Dates: start: 202003

REACTIONS (3)
  - Cardiac arrest [Fatal]
  - Off label use [Unknown]
  - Electrocardiogram abnormal [Fatal]

NARRATIVE: CASE EVENT DATE: 202003
